FAERS Safety Report 14653402 (Version 1)
Quarter: 2018Q1

REPORT INFORMATION
  Report Type: Spontaneous
  Country: US (occurrence: US)
  Receive Date: 20180316
  Receipt Date: 20180316
  Transmission Date: 20180509
  Serious: No
  Sender: FDA-Public Use
  Company Number: None

PATIENT
  Age: 10 Year
  Sex: Male

DRUGS (1)
  1. HALOPERIDOL DECANOATE. [Suspect]
     Active Substance: HALOPERIDOL DECANOATE
     Dates: start: 20180217, end: 20180218

REACTIONS (3)
  - Dysphagia [None]
  - Drooling [None]
  - Throat tightness [None]

NARRATIVE: CASE EVENT DATE: 20180217
